FAERS Safety Report 10393440 (Version 1)
Quarter: 2014Q3

REPORT INFORMATION
  Report Type: Spontaneous
  Country: US (occurrence: US)
  Receive Date: 20140819
  Receipt Date: 20140819
  Transmission Date: 20150326
  Serious: Yes (Hospitalization)
  Sender: FDA-Public Use
  Company Number: US-GLAXOSMITHKLINE-A1084693A

PATIENT
  Age: 74 Year
  Sex: Male

DRUGS (1)
  1. MEPRON [Suspect]
     Active Substance: ATOVAQUONE
     Indication: INFECTION PROPHYLAXIS
     Dosage: 750MG TWICE PER DAY
     Route: 048
     Dates: start: 201206

REACTIONS (5)
  - Fall [Recovered/Resolved]
  - Therapeutic response changed [Unknown]
  - Blindness [Not Recovered/Not Resolved]
  - Off label use [Unknown]
  - Eye penetration [Recovered/Resolved]

NARRATIVE: CASE EVENT DATE: 20130517
